FAERS Safety Report 7829812-9 (Version None)
Quarter: 2011Q4

REPORT INFORMATION
  Report Type: 
  Country: None (occurrence: None)
  Receive Date: 20111020
  Receipt Date: 20111020
  Transmission Date: 20120403
  Serious: Yes (Other)
  Sender: FDA-Public Use
  Company Number: None

PATIENT
  Age: 65 Year
  Sex: Female
  Weight: 90.7194 kg

DRUGS (1)
  1. TRICOR [Suspect]
     Indication: BLOOD CHOLESTEROL ABNORMAL
     Dosage: 1 TABLET A DAY
     Dates: start: 20110812, end: 20110918

REACTIONS (7)
  - PAIN [None]
  - DIARRHOEA [None]
  - VOMITING [None]
  - MALAISE [None]
  - PROTHROMBIN TIME PROLONGED [None]
  - MUSCLE SPASMS [None]
  - ABDOMINAL PAIN UPPER [None]
